FAERS Safety Report 9843092 (Version 1)
Quarter: 2013Q4

REPORT INFORMATION
  Report Type: Spontaneous
  Country: US (occurrence: None)
  Receive Date: 20131219
  Receipt Date: 20131219
  Transmission Date: 20140711
  Serious: Yes (Other)
  Sender: FDA-Public Use
  Company Number: 163-20785-13070866

PATIENT
  Age: 52 Year
  Sex: Male

DRUGS (19)
  1. THALOMID (THALIDOMIDE) (CAPSULES) [Suspect]
     Indication: MULTIPLE SCLEROSIS
     Route: 048
     Dates: start: 201204, end: 2012
  2. MELPHALAN (MELPHALAN)(UNKNOWN) [Concomitant]
  3. ZOMETA (ZOLEDRONIC ACID)(INJECTION) [Concomitant]
  4. ACYCLOVIR(ACICLOVIR)(400 MILLIGRAM, TABLETS) [Concomitant]
  5. PROTONIX(TABLETS) [Concomitant]
  6. GABAPENTIN(GABAPENTIN)(CAPSULES) [Concomitant]
  7. MULTIVITAMINS(MULTIVITAMINS)(TABLETS) [Concomitant]
  8. KLOR-CON M20(POTASSIUM CHLORIDE)(TABLETS) [Concomitant]
  9. LEVAQUIN(LEVOFLOXACIN) (TABLETS) [Concomitant]
  10. BENADRYL(DIPHENHYDRAMINE HYDROCHLORIDE)(SOLUTION) [Concomitant]
  11. SOLU-CORTEF(HYDROCORTISONE SODIUM SUCCINATE)(SOLUTION) [Concomitant]
  12. FLUCONAZOLE(FLUCONAZOLE)(SOLUTION) [Concomitant]
  13. COUMADIN(WARFARIN SODIUM)(UNKNOWN) [Concomitant]
  14. VELCADE(BORTEZOMIB)(UNKNOWN) [Concomitant]
  15. DEXAMETHASONE(DEXAMETHASONE)(UNKNOWN) [Concomitant]
  16. CISPLATIN(CISPLATIN)(UNKNOWN) [Concomitant]
  17. CYCLOPHOSPHAMIDE(CYCLOPHOSPHAMIDE)(UNKNOWN) [Concomitant]
  18. ETOPOSIDE(ETOPOSIDE)(UNKNOWN) [Concomitant]
  19. ADRIAMYCIN(DOXORUBICIN)(UNKNOWN) [Concomitant]

REACTIONS (6)
  - Thrombocytopenia [None]
  - Enterococcal bacteraemia [None]
  - Deep vein thrombosis [None]
  - Aspergillus infection [None]
  - Neutropenia [None]
  - Haematoma [None]
